FAERS Safety Report 4964178-3 (Version None)
Quarter: 2006Q2

REPORT INFORMATION
  Report Type: 
  Country: None (occurrence: None)
  Receive Date: 20060406
  Receipt Date: 20060327
  Transmission Date: 20061013
  Serious: Yes (Other)
  Sender: FDA-Public Use
  Company Number: US-JNJFOC-20060307151

PATIENT
  Sex: Female
  Weight: 122.47 kg

DRUGS (1)
  1. REMICADE [Suspect]
     Route: 042

REACTIONS (2)
  - RESPIRATORY TRACT INFECTION [None]
  - SYSTEMIC LUPUS ERYTHEMATOSUS [None]
